FAERS Safety Report 9407796 (Version 1)
Quarter: 2013Q1

REPORT INFORMATION
  Report Type: Spontaneous
  Country: US (occurrence: None)
  Receive Date: 20130328
  Receipt Date: 20130328
  Transmission Date: 20140127
  Serious: Yes (Disabling)
  Sender: FDA-Public Use
  Company Number: 2013S1000652

PATIENT
  Age: 83 Year
  Sex: Male
  Weight: 81.65 kg

DRUGS (3)
  1. LIVALO (PITAVASTATIN) TABLETS 2 MG [Suspect]
     Indication: BLOOD CHOLESTEROL
     Route: 048
     Dates: start: 20111201
  2. OMEGA 3 [Concomitant]
  3. INJECTION FOR MACULAR DEGENERATION [Concomitant]

REACTIONS (1)
  - Blindness [None]
